FAERS Safety Report 4715449-7 (Version None)
Quarter: 2005Q3

REPORT INFORMATION
  Report Type: 
  Country: None (occurrence: None)
  Receive Date: 20050715
  Receipt Date: 20050715
  Transmission Date: 20060218
  Serious: Yes (Hospitalization)
  Sender: FDA-Public Use
  Company Number: None

PATIENT
  Sex: Female
  Weight: 72.5755 kg

DRUGS (2)
  1. LARIAM [Suspect]
     Indication: FOREIGN TRAVEL
     Dosage: ORAL
     Route: 048
     Dates: start: 20020101, end: 20020301
  2. LARIAM [Suspect]
     Indication: PROPHYLAXIS
     Dosage: ORAL
     Route: 048
     Dates: start: 20020101, end: 20020301

REACTIONS (5)
  - ABNORMAL BEHAVIOUR [None]
  - AGGRESSION [None]
  - DEPRESSION [None]
  - SCREAMING [None]
  - SUICIDAL IDEATION [None]
